FAERS Safety Report 5290524-X (Version None)
Quarter: 2007Q2

REPORT INFORMATION
  Report Type: 
  Country: None (occurrence: None)
  Receive Date: 20070404
  Receipt Date: 20070404
  Transmission Date: 20071010
  Serious: No
  Sender: FDA-Public Use
  Company Number: None

PATIENT
  Sex: Female

DRUGS (2)
  1. TOPAMAX [Suspect]
     Dosage: TABLET  BOTTLE 13 GM
  2. TOPROL-XL [Suspect]
     Dosage: TABLET, EXTENDED RELEASE  BOTTLE 13 GM

REACTIONS (2)
  - DRUG DISPENSING ERROR [None]
  - MEDICATION ERROR [None]
